FAERS Safety Report 18767332 (Version 1)
Quarter: 2021Q1

REPORT INFORMATION
  Report Type: Spontaneous
  Country: US (occurrence: US)
  Receive Date: 20210121
  Receipt Date: 20210121
  Transmission Date: 20210419
  Serious: Yes (Other)
  Sender: FDA-Public Use
  Company Number: None

PATIENT
  Age: 29 Year
  Sex: Female
  Weight: 90 kg

DRUGS (1)
  1. METFORMIN HYDRCOCHLORIDE TABLETS, USP . RX ONLY [Suspect]
     Active Substance: METFORMIN HYDROCHLORIDE
     Indication: TYPE 2 DIABETES MELLITUS
     Dates: start: 20200903, end: 20200911

REACTIONS (5)
  - Product odour abnormal [None]
  - Abdominal pain upper [None]
  - Pollakiuria [None]
  - Product substitution issue [None]
  - Diarrhoea [None]

NARRATIVE: CASE EVENT DATE: 20200904
